FAERS Safety Report 13552169 (Version 2)
Quarter: 2017Q2

REPORT INFORMATION
  Report Type: Spontaneous
  Country: TH (occurrence: TH)
  Receive Date: 20170516
  Receipt Date: 20170609
  Transmission Date: 20170830
  Serious: Yes (Other)
  Sender: FDA-Public Use
  Company Number: PHHY2017TH066062

PATIENT
  Age: 54 Year
  Sex: Male

DRUGS (12)
  1. TIMOLOL. [Suspect]
     Active Substance: TIMOLOL
     Indication: INTRAOCULAR PRESSURE INCREASED
     Dosage: UNK UNK, BID (IN LEFT EYE)
     Route: 061
  2. CYCLOPENTOLATE. [Suspect]
     Active Substance: CYCLOPENTOLATE
     Indication: PAIN
     Dosage: UNK UNK, QD
     Route: 065
  3. KALIMATE [Concomitant]
     Active Substance: CALCIUM POLYSTYRENE SULFONATE
     Indication: PRODUCT USED FOR UNKNOWN INDICATION
     Dosage: 5 G, QD
     Route: 065
  4. BRINZOLAMIDE [Suspect]
     Active Substance: BRINZOLAMIDE
     Indication: INTRAOCULAR PRESSURE INCREASED
     Dosage: UNK UNK, TID (IN RIGHT EYE)
     Route: 061
  5. EXOPRED [Suspect]
     Active Substance: OFLOXACIN\PREDNISOLONE ACETATE
     Indication: INFLAMMATION
     Dosage: UNK UNK, BID
     Route: 065
  6. BRIMONIDINE [Suspect]
     Active Substance: BRIMONIDINE TARTRATE
     Indication: INTRAOCULAR PRESSURE INCREASED
     Dosage: UNK UNK, TID (IN RIGHT EYE)
     Route: 061
  7. LASIX [Concomitant]
     Active Substance: FUROSEMIDE
     Indication: PRODUCT USED FOR UNKNOWN INDICATION
     Dosage: 500 OT, BID
     Route: 065
  8. ATROPINE. [Suspect]
     Active Substance: ATROPINE
     Indication: PRODUCT USED FOR UNKNOWN INDICATION
     Route: 065
  9. TANZARIL [Concomitant]
     Indication: PRODUCT USED FOR UNKNOWN INDICATION
     Dosage: 50 OT, QD
     Route: 065
  10. DOXAZOSIN [Concomitant]
     Active Substance: DOXAZOSIN\DOXAZOSIN MESYLATE
     Indication: HYPERTENSION
     Dosage: 2 MG, BID
     Route: 065
  11. ZIMMEX [Concomitant]
     Indication: PRODUCT USED FOR UNKNOWN INDICATION
     Dosage: 10 OT, QD
     Route: 065
  12. AMLODIPINE [Concomitant]
     Active Substance: AMLODIPINE BESYLATE
     Indication: PRODUCT USED FOR UNKNOWN INDICATION
     Dosage: 10 OT, BID
     Route: 065

REACTIONS (13)
  - Exophthalmos [Unknown]
  - Disease progression [Unknown]
  - Conjunctival oedema [Recovering/Resolving]
  - Corneal oedema [Unknown]
  - Vomiting [Unknown]
  - Anterior chamber disorder [Unknown]
  - Hyphaema [Unknown]
  - Conjunctival haemorrhage [Unknown]
  - Hyperaemia [Recovering/Resolving]
  - Corneal epithelium defect [Recovering/Resolving]
  - Vision blurred [Unknown]
  - Aphakia [Unknown]
  - Headache [Unknown]

NARRATIVE: CASE EVENT DATE: 20161109
